FAERS Safety Report 18518604 (Version 2)
Quarter: 2020Q4

REPORT INFORMATION
  Report Type: Spontaneous
  Country: US (occurrence: US)
  Receive Date: 20201118
  Receipt Date: 20201130
  Transmission Date: 20210114
  Serious: No
  Sender: FDA-Public Use
  Company Number: US-TRIS PHARMA, INC.-20US009150

PATIENT

DRUGS (3)
  1. DYANAVEL XR [Suspect]
     Active Substance: AMPHETAMINE
     Dosage: 3 MILLIGRAM
     Route: 048
     Dates: start: 202009
  2. DYANAVEL XR [Suspect]
     Active Substance: AMPHETAMINE
     Indication: ATTENTION DEFICIT HYPERACTIVITY DISORDER
     Dosage: 37 MILLIGRAM, QD
     Route: 048
     Dates: end: 202011
  3. DYANAVEL XR [Suspect]
     Active Substance: AMPHETAMINE
     Dosage: TITRATING UP BY 2.5ML
     Route: 048

REACTIONS (4)
  - Overdose [Unknown]
  - Drug titration error [Unknown]
  - Drug ineffective [Unknown]
  - Disturbance in attention [Not Recovered/Not Resolved]
